FAERS Safety Report 19031413 (Version 1)
Quarter: 2021Q1

REPORT INFORMATION
  Report Type: Spontaneous
  Country: US (occurrence: US)
  Receive Date: 20210319
  Receipt Date: 20210319
  Transmission Date: 20210420
  Serious: Yes (Life-Threatening, Disabling, Other)
  Sender: FDA-Public Use
  Company Number: US-ASTRAZENECA-2021A163600

PATIENT
  Age: 22455 Day
  Sex: Female
  Weight: 168.7 kg

DRUGS (18)
  1. SEROQUEL [Suspect]
     Active Substance: QUETIAPINE FUMARATE
     Indication: HALLUCINATION
     Route: 048
  2. METFORMIN [Concomitant]
     Active Substance: METFORMIN HYDROCHLORIDE
  3. SEROQUEL [Suspect]
     Active Substance: QUETIAPINE FUMARATE
     Indication: HALLUCINATION, AUDITORY
     Route: 048
     Dates: start: 19940104, end: 20210317
  4. SEROQUEL [Suspect]
     Active Substance: QUETIAPINE FUMARATE
     Indication: SUICIDAL BEHAVIOUR
     Route: 048
     Dates: start: 19940104, end: 20210317
  5. VITAMIN C [Concomitant]
     Active Substance: ASCORBIC ACID
  6. AMLODIPINE [Concomitant]
     Active Substance: AMLODIPINE BESYLATE
  7. IRON [Concomitant]
     Active Substance: IRON
  8. ASTORVASTIN [Concomitant]
  9. SEROQUEL [Suspect]
     Active Substance: QUETIAPINE FUMARATE
     Indication: HALLUCINATION
     Route: 048
     Dates: start: 19940104, end: 20210317
  10. ATENOLOL. [Concomitant]
     Active Substance: ATENOLOL
  11. SEROQUEL [Suspect]
     Active Substance: QUETIAPINE FUMARATE
     Indication: HALLUCINATION, AUDITORY
     Route: 048
  12. SEROQUEL [Suspect]
     Active Substance: QUETIAPINE FUMARATE
     Indication: SUICIDAL BEHAVIOUR
     Route: 048
  13. MIRALAX [Concomitant]
     Active Substance: POLYETHYLENE GLYCOL 3350
  14. LISINOPRIL. [Concomitant]
     Active Substance: LISINOPRIL
  15. VITAMIN D [Concomitant]
     Active Substance: VITAMIN D NOS
  16. VENLAFAXINE [Concomitant]
     Active Substance: VENLAFAXINE HYDROCHLORIDE
  17. NOVOLOG [Concomitant]
     Active Substance: INSULIN ASPART
     Dosage: 75?100UTS
  18. LANTUS [Concomitant]
     Active Substance: INSULIN GLARGINE
     Dosage: 80?120UTS

REACTIONS (11)
  - Suicide attempt [Unknown]
  - Drug dependence [Unknown]
  - Bipolar disorder [Recovering/Resolving]
  - Anger [Unknown]
  - Obesity [Unknown]
  - Suicidal ideation [Unknown]
  - Gait inability [Unknown]
  - Weight bearing difficulty [Unknown]
  - Product dose omission issue [Unknown]
  - Fall [Unknown]
  - Constipation [Unknown]

NARRATIVE: CASE EVENT DATE: 20210315
